FAERS Safety Report 4523405-7 (Version None)
Quarter: 2004Q4

REPORT INFORMATION
  Report Type: 
  Country: None (occurrence: None)
  Receive Date: 20041209
  Receipt Date: 20041130
  Transmission Date: 20050328
  Serious: Yes (Hospitalization, Other)
  Sender: FDA-Public Use
  Company Number: 2004100559

PATIENT
  Age: 55 Year
  Sex: Male
  Weight: 70.3075 kg

DRUGS (2)
  1. VIAGRA [Suspect]
     Indication: ERECTILE DYSFUNCTION
     Dosage: (50 MG)
     Dates: start: 20010101
  2. MORPHINE SULFATE [Concomitant]

REACTIONS (6)
  - IATROGENIC INJURY [None]
  - MALIGNANT PALATE NEOPLASM [None]
  - OFF LABEL USE [None]
  - OSTEONECROSIS [None]
  - OVERDOSE [None]
  - RADIATION INJURY [None]
